FAERS Safety Report 9413623 (Version 4)
Quarter: 2013Q3

REPORT INFORMATION
  Report Type: Report from Study
  Country: US (occurrence: US)
  Receive Date: 20130722
  Receipt Date: 20130927
  Transmission Date: 20140515
  Serious: Yes (Hospitalization, Other)
  Sender: FDA-Public Use
  Company Number: US-ALEXION PHARMACEUTICALS INC.-A201301638

PATIENT
  Age: 43 Year
  Sex: Male
  Weight: 61 kg

DRUGS (21)
  1. SOLIRIS [Suspect]
     Indication: HAEMOLYTIC URAEMIC SYNDROME
     Dosage: 900 MG, QW
     Route: 042
     Dates: start: 20130507
  2. TYLENOL [Concomitant]
     Indication: PRODUCT USED FOR UNKNOWN INDICATION
     Dosage: 500 MG, EVERY 6 HOURS AS NEEDED
     Route: 048
  3. GABAPENTIN [Concomitant]
     Indication: PRODUCT USED FOR UNKNOWN INDICATION
     Dosage: 600 MG, TID
     Route: 048
  4. PROTONIX [Concomitant]
     Indication: PRODUCT USED FOR UNKNOWN INDICATION
     Dosage: 40 MG, BID
     Route: 048
  5. FLONASE [Concomitant]
     Indication: PRODUCT USED FOR UNKNOWN INDICATION
     Dosage: 2 SPRAYS IN EACH NOSTRIL DAILY
  6. REQUIP [Concomitant]
     Indication: PRODUCT USED FOR UNKNOWN INDICATION
     Dosage: 0.5 MG, BID
     Route: 048
  7. DILAUDID [Concomitant]
     Indication: PAIN
     Dosage: 4 MG 1 TABLET EVERY 3 HOURS AS NEEDED
     Route: 048
  8. APRESOLINE [Suspect]
     Dosage: 100 MG, TID
     Route: 048
  9. NORVASC [Concomitant]
     Indication: PRODUCT USED FOR UNKNOWN INDICATION
     Dosage: 2.5 MG, TID
     Route: 048
  10. NORMODYNE [Concomitant]
     Indication: PRODUCT USED FOR UNKNOWN INDICATION
     Dosage: 200 MG, EVERY 12 HOURS
     Route: 048
  11. SENOKOT S [Concomitant]
     Indication: PRODUCT USED FOR UNKNOWN INDICATION
     Dosage: 2 DF, BID
     Route: 048
  12. GLYCOLAX [Concomitant]
     Indication: PRODUCT USED FOR UNKNOWN INDICATION
     Dosage: 17 G, QD
     Route: 048
  13. CREON [Concomitant]
     Indication: PRODUCT USED FOR UNKNOWN INDICATION
     Dosage: 3 TIMES PER DAY WITH MEALS
     Route: 048
  14. AMBIEN [Concomitant]
     Indication: INSOMNIA
     Dosage: 5 MG, 2 TABLETS NIGHTLY, AS NEEDED
     Route: 048
  15. COMPAZINE [Concomitant]
     Indication: NAUSEA
     Dosage: 10 MG 1 TABLET EVERY 6 HOURS, AS NEEDED
     Route: 048
  16. ALBUTEROL [Concomitant]
     Indication: WHEEZING
     Dosage: 2 PUFFS EVERY 4 HOURS, AS NEEDED
  17. LASIX [Concomitant]
     Indication: PRODUCT USED FOR UNKNOWN INDICATION
     Dosage: 40 MG 0.5 TABLET, DAILY
     Route: 048
  18. ATIVAN [Concomitant]
     Indication: ANXIETY
     Dosage: 0.5 MG 1 TABLET EVERY 8 HOURS AS NEEDED
     Route: 048
  19. ATIVAN [Concomitant]
     Indication: NAUSEA
  20. FENTANYL [Concomitant]
     Indication: PRODUCT USED FOR UNKNOWN INDICATION
     Dosage: 25 MCG/HR 1 PATCH EVERY 72 HOURS
     Route: 062
  21. LIDODERM [Concomitant]
     Indication: PRODUCT USED FOR UNKNOWN INDICATION
     Dosage: 5 PERCENT/1 PATCH DAILY
     Route: 062

REACTIONS (9)
  - Renal failure acute [Recovering/Resolving]
  - Small intestinal obstruction [Recovered/Resolved]
  - Blood count abnormal [Unknown]
  - Pain [Unknown]
  - Loss of consciousness [Unknown]
  - Abdominal pain upper [Unknown]
  - Hypertension [Unknown]
  - Anaemia [Recovered/Resolved]
  - Back pain [Unknown]
